FAERS Safety Report 22029751 (Version 1)
Quarter: 2023Q1

REPORT INFORMATION
  Report Type: Spontaneous
  Country: US (occurrence: US)
  Receive Date: 20230223
  Receipt Date: 20230223
  Transmission Date: 20230417
  Serious: No
  Sender: FDA-Public Use
  Company Number: US-PFIZER INC-202300076291

PATIENT
  Age: 66 Year
  Sex: Female

DRUGS (3)
  1. PAXLOVID [Suspect]
     Active Substance: NIRMATRELVIR\RITONAVIR
     Indication: COVID-19 treatment
     Dosage: UNK
     Dates: start: 20230211, end: 20230216
  2. EZETIMIBE [Concomitant]
     Active Substance: EZETIMIBE
     Dates: start: 201701, end: 202302
  3. ROSUVASTATIN GLENMARK [Concomitant]
     Dates: start: 202301, end: 202302

REACTIONS (2)
  - Rhinorrhoea [Recovering/Resolving]
  - Respiratory tract congestion [Recovering/Resolving]

NARRATIVE: CASE EVENT DATE: 20230220
